FAERS Safety Report 9554102 (Version 3)
Quarter: 2013Q4

REPORT INFORMATION
  Report Type: Report from Study
  Country: NL (occurrence: NL)
  Receive Date: 20130925
  Receipt Date: 20131125
  Transmission Date: 20140711
  Serious: Yes (Other)
  Sender: FDA-Public Use
  Company Number: NL-INCYTE CORPORATION-2013IN002218

PATIENT
  Sex: 0

DRUGS (1)
  1. INC424 [Suspect]
     Indication: MYELOFIBROSIS
     Dosage: 15 MG, (2DD, 15 MG)
     Route: 065
     Dates: start: 20120921

REACTIONS (5)
  - Vitreous detachment [Recovered/Resolved]
  - Visual impairment [Recovered/Resolved with Sequelae]
  - Urinary tract infection [Not Recovered/Not Resolved]
  - Oral candidiasis [Recovered/Resolved]
  - Cataract [Not Recovered/Not Resolved]
